FAERS Safety Report 10439951 (Version 1)
Quarter: 2014Q3

REPORT INFORMATION
  Report Type: Spontaneous
  Country: US (occurrence: US)
  Receive Date: 20140908
  Receipt Date: 20140908
  Transmission Date: 20150326
  Serious: No
  Sender: FDA-Public Use
  Company Number: US-BRISTOL-MYERS SQUIBB COMPANY-19391937

PATIENT
  Age: 56 Year
  Sex: Female
  Weight: 63.49 kg

DRUGS (4)
  1. ARMOUR THYROID [Concomitant]
     Active Substance: THYROID, PORCINE\THYROID, UNSPECIFIED
  2. VIIBRYD [Concomitant]
     Active Substance: VILAZODONE HYDROCHLORIDE
  3. ABILIFY [Suspect]
     Active Substance: ARIPIPRAZOLE
     Indication: GENERALISED ANXIETY DISORDER
     Dosage: PHYSICIAN GAVE HER 2MG SAMPLE PACKS AND TOLD HER TO CUT THE TABLETS IN HALF
     Dates: start: 20130911
  4. ABILIFY [Suspect]
     Active Substance: ARIPIPRAZOLE
     Indication: DEPRESSION
     Dosage: PHYSICIAN GAVE HER 2MG SAMPLE PACKS AND TOLD HER TO CUT THE TABLETS IN HALF
     Dates: start: 20130911

REACTIONS (3)
  - Feeling abnormal [Unknown]
  - Insomnia [Unknown]
  - Wrong technique in drug usage process [Unknown]

NARRATIVE: CASE EVENT DATE: 20130911
